FAERS Safety Report 18524427 (Version 3)
Quarter: 2021Q1

REPORT INFORMATION
  Report Type: Report from Study
  Country: US (occurrence: US)
  Receive Date: 20201119
  Receipt Date: 20210319
  Transmission Date: 20210419
  Serious: Yes (Hospitalization, Other)
  Sender: FDA-Public Use
  Company Number: US-TAKEDA-2020TUS049810

PATIENT
  Age: 29 Year
  Sex: Female

DRUGS (12)
  1. TEDUGLUTIDE [Suspect]
     Active Substance: TEDUGLUTIDE
     Indication: SHORT-BOWEL SYNDROME
     Dosage: 2.66 MILLIGRAM, QD
     Route: 058
     Dates: start: 202010
  2. TEDUGLUTIDE [Suspect]
     Active Substance: TEDUGLUTIDE
     Dosage: 2.66 MILLILITER, QD
     Route: 058
     Dates: start: 20201007
  3. TEDUGLUTIDE [Suspect]
     Active Substance: TEDUGLUTIDE
     Dosage: 2.66 MILLIGRAM, QD
     Route: 058
     Dates: start: 20201008
  4. TEDUGLUTIDE [Suspect]
     Active Substance: TEDUGLUTIDE
     Dosage: 2.66 MILLILITER, QD
     Route: 058
     Dates: start: 20201007
  5. TEDUGLUTIDE [Suspect]
     Active Substance: TEDUGLUTIDE
     Indication: SHORT-BOWEL SYNDROME
     Dosage: 2.66 MILLIGRAM, QD
     Route: 058
     Dates: start: 202010
  6. TEDUGLUTIDE [Suspect]
     Active Substance: TEDUGLUTIDE
     Dosage: 2.66 MILLIGRAM, QD
     Route: 058
     Dates: start: 20201008
  7. TEDUGLUTIDE [Suspect]
     Active Substance: TEDUGLUTIDE
     Dosage: 2.66 MILLILITER, QD
     Route: 058
     Dates: start: 20201007
  8. TEDUGLUTIDE [Suspect]
     Active Substance: TEDUGLUTIDE
     Indication: SHORT-BOWEL SYNDROME
     Dosage: 2.66 MILLIGRAM, QD
     Route: 058
     Dates: start: 202010
  9. TEDUGLUTIDE [Suspect]
     Active Substance: TEDUGLUTIDE
     Dosage: 2.66 MILLIGRAM, QD
     Route: 058
     Dates: start: 20201008
  10. TEDUGLUTIDE [Suspect]
     Active Substance: TEDUGLUTIDE
     Indication: SHORT-BOWEL SYNDROME
     Dosage: 2.66 MILLIGRAM, QD
     Route: 058
     Dates: start: 202010
  11. TEDUGLUTIDE [Suspect]
     Active Substance: TEDUGLUTIDE
     Dosage: 2.66 MILLIGRAM, QD
     Route: 058
     Dates: start: 20201008
  12. TEDUGLUTIDE [Suspect]
     Active Substance: TEDUGLUTIDE
     Dosage: 2.66 MILLILITER, QD
     Route: 058
     Dates: start: 20201007

REACTIONS (8)
  - Gastrointestinal stoma complication [Unknown]
  - Anxiety [Unknown]
  - Gastroenteritis viral [Unknown]
  - Injection site bruising [Unknown]
  - Ovarian cyst ruptured [Unknown]
  - Liquid product physical issue [Unknown]
  - Product dose omission issue [Unknown]
  - Sepsis [Unknown]

NARRATIVE: CASE EVENT DATE: 20201207
